FAERS Safety Report 22201288 (Version 6)
Quarter: 2024Q4

REPORT INFORMATION
  Report Type: Spontaneous
  Country: US (occurrence: US)
  Receive Date: 20230412
  Receipt Date: 20241007
  Transmission Date: 20250114
  Serious: Yes (Other)
  Sender: NOVARTIS
  Company Number: US-002147023-NVSC2023US079870

PATIENT
  Sex: Male

DRUGS (5)
  1. ENTRESTO [Suspect]
     Active Substance: SACUBITRIL\VALSARTAN
     Indication: Product used for unknown indication
     Dosage: 1 DOSAGE FORM, BID (97/103 MG)
     Route: 048
  2. ENTRESTO [Suspect]
     Active Substance: SACUBITRIL\VALSARTAN
     Dosage: UNK (REDUCED DOSE IN HALF)
     Route: 048
  3. ENTRESTO [Suspect]
     Active Substance: SACUBITRIL\VALSARTAN
     Dosage: UNK (REDUCE DOSE IN HALF)
     Route: 048
  4. ENTRESTO [Suspect]
     Active Substance: SACUBITRIL\VALSARTAN
     Dosage: 0.25 DOSAGE FORM, BID (24/26 MG)
     Route: 048
  5. ENTRESTO [Suspect]
     Active Substance: SACUBITRIL\VALSARTAN
     Dosage: 24/26 MG, BID
     Route: 048

REACTIONS (19)
  - Ejection fraction decreased [Unknown]
  - Arteriovenous malformation [Unknown]
  - Hypotension [Unknown]
  - Renal disorder [Unknown]
  - Memory impairment [Unknown]
  - Anaemia [Unknown]
  - Sleep apnoea syndrome [Unknown]
  - Laryngeal granuloma [Unknown]
  - Dry throat [Unknown]
  - Bundle branch block left [Unknown]
  - Weight increased [Unknown]
  - Abdominal discomfort [Unknown]
  - Cough [Unknown]
  - Fatigue [Unknown]
  - Gait inability [Unknown]
  - Blood pressure diastolic decreased [Unknown]
  - Iron deficiency [Unknown]
  - Wrong technique in product usage process [Unknown]
  - Product dose omission issue [Unknown]
